FAERS Safety Report 14702652 (Version 2)
Quarter: 2018Q2

REPORT INFORMATION
  Report Type: Report from Study
  Country: US (occurrence: US)
  Receive Date: 20180402
  Receipt Date: 20180427
  Transmission Date: 20180711
  Serious: Yes (Death, Hospitalization, Other)
  Sender: FDA-Public Use
  Company Number: US-UCBSA-2018012918

PATIENT
  Age: 74 Year
  Sex: Female

DRUGS (2)
  1. NITROGLYCERINE [Concomitant]
     Active Substance: NITROGLYCERIN
     Indication: CARDIAC DISORDER
  2. LACOSAMIDE. [Suspect]
     Active Substance: LACOSAMIDE
     Indication: SEIZURE
     Dosage: 150 MG, 2X/DAY (BID)
     Route: 048
     Dates: start: 201411

REACTIONS (3)
  - Renal failure [Fatal]
  - Myocardial infarction [Fatal]
  - Sepsis [Fatal]

NARRATIVE: CASE EVENT DATE: 20180309
